FAERS Safety Report 4264465-0 (Version None)
Quarter: 2004Q1

REPORT INFORMATION
  Report Type: 
  Country: None (occurrence: None)
  Receive Date: 20040106
  Receipt Date: 20040106
  Transmission Date: 20041129
  Serious: Yes (Hospitalization)
  Sender: FDA-Public Use
  Company Number: None

PATIENT
  Sex: Female
  Weight: 92.5338 kg

DRUGS (2)
  1. ARIPIPRAZOLE-ABIL 30 MG BRISTOL MYERS SQUIBB [Suspect]
     Indication: DEMENTIA
     Dosage: 30 MG DAILY ORAL
     Route: 048
  2. ARIPIPRAZOLE-ABIL 30 MG BRISTOL MYERS SQUIBB [Suspect]
     Indication: MAJOR DEPRESSION
     Dosage: 30 MG DAILY ORAL
     Route: 048

REACTIONS (2)
  - ABASIA [None]
  - RHABDOMYOLYSIS [None]
